FAERS Safety Report 24600519 (Version 2)
Quarter: 2025Q3

REPORT INFORMATION
  Report Type: Spontaneous
  Country: EU (occurrence: EU)
  Receive Date: 20241110
  Receipt Date: 20250802
  Transmission Date: 20251021
  Serious: Yes (Hospitalization, Other)
  Sender: ALEXION PHARMACEUTICALS
  Company Number: None

PATIENT
  Age: 71 Year
  Sex: Female

DRUGS (8)
  1. LYNPARZA [Suspect]
     Active Substance: OLAPARIB
     Indication: Ovarian cancer
     Dosage: 600 MILLIGRAM, QD
     Dates: start: 20240504, end: 20240515
  2. LYNPARZA [Suspect]
     Active Substance: OLAPARIB
     Dosage: 500 MILLIGRAM, QD
     Dates: start: 20240516, end: 20240626
  3. AVASTIN [Suspect]
     Active Substance: BEVACIZUMAB
     Indication: Ovarian cancer
     Dates: start: 20240131, end: 20240625
  4. BISOPROLOL FUMARATE\PERINDOPRIL ARGININE [Suspect]
     Active Substance: BISOPROLOL FUMARATE\PERINDOPRIL ARGININE
     Indication: Hypertension
     Dosage: 0.5 DOSAGE FORM, QD
     Dates: start: 20240624, end: 20240902
  5. BISOPROLOL FUMARATE\PERINDOPRIL ARGININE [Suspect]
     Active Substance: BISOPROLOL FUMARATE\PERINDOPRIL ARGININE
     Dosage: 1 DOSAGE FORM, QD
     Dates: start: 20240903
  6. PENICILLIN V [Concomitant]
     Active Substance: PENICILLIN V
     Indication: Infection prophylaxis
     Dosage: UNK UNK, QD
     Dates: start: 202311
  7. PENICILLIN V [Concomitant]
     Active Substance: PENICILLIN V
     Indication: Splenectomy
  8. LOPERAMIDE [Concomitant]
     Active Substance: LOPERAMIDE
     Indication: Post procedural diarrhoea
     Dosage: 2 DOSAGE FORM, QD
     Dates: start: 202311

REACTIONS (2)
  - Immune thrombocytopenia [Recovering/Resolving]
  - Anaemia [Recovered/Resolved]

NARRATIVE: CASE EVENT DATE: 20240516
